FAERS Safety Report 18041212 (Version 1)
Quarter: 2020Q3

REPORT INFORMATION
  Report Type: Spontaneous
  Country: US (occurrence: US)
  Receive Date: 20200719
  Receipt Date: 20200719
  Transmission Date: 20201103
  Serious: Yes (Hospitalization, Other)
  Sender: FDA-Public Use
  Company Number: US-ACCORD-191217

PATIENT
  Age: 27 Year
  Sex: Male
  Weight: 80 kg

DRUGS (3)
  1. METHOTREXATE. [Suspect]
     Active Substance: METHOTREXATE
     Dosage: STRENGTH 2.5 MG
     Route: 048
  2. PREDNISONE. [Concomitant]
     Active Substance: PREDNISONE
     Dosage: STRENGTH : 10 MG
     Route: 048
  3. HYDROXYCHLOROQUINE [Concomitant]
     Active Substance: HYDROXYCHLOROQUINE
     Dosage: STRENGTH : 20 MG
     Route: 048

REACTIONS (6)
  - Intentional overdose [Unknown]
  - Platelet count decreased [Recovered/Resolved]
  - Treatment noncompliance [Unknown]
  - Haematotoxicity [Unknown]
  - Haemoglobin decreased [Recovered/Resolved]
  - Suicide attempt [Unknown]
